FAERS Safety Report 17631695 (Version 1)
Quarter: 2020Q2

REPORT INFORMATION
  Report Type: Spontaneous
  Country: US (occurrence: US)
  Receive Date: 20200403
  Receipt Date: 20200403
  Transmission Date: 20200713
  Serious: Yes (Other)
  Sender: FDA-Public Use
  Company Number: None

PATIENT
  Sex: Female
  Weight: 103.42 kg

DRUGS (1)
  1. PREGABALIN 100MG [Suspect]
     Active Substance: PREGABALIN
     Indication: FIBROMYALGIA
     Dosage: ?          OTHER DOSE:100MG CAPS;OTHER FREQUENCY:1PO710;?
     Route: 048
     Dates: start: 20200103

REACTIONS (4)
  - Vertigo [None]
  - Nausea [None]
  - Fall [None]
  - Rash [None]
